FAERS Safety Report 8342328-9 (Version None)
Quarter: 2012Q2

REPORT INFORMATION
  Report Type: 
  Country: None (occurrence: None)
  Receive Date: 20120507
  Receipt Date: 20120427
  Transmission Date: 20120825
  Serious: Yes (Other)
  Sender: FDA-Public Use
  Company Number: SE-BRISTOL-MYERS SQUIBB COMPANY-16417131

PATIENT
  Sex: Male

DRUGS (3)
  1. ABILIFY [Suspect]
  2. OMEPRAZOLE [Concomitant]
  3. IBRUPROFEN [Concomitant]

REACTIONS (3)
  - MEGAKARYOCYTES ABNORMAL [None]
  - ANAEMIA [None]
  - GRANULOCYTES ABNORMAL [None]
